FAERS Safety Report 20038780 (Version 1)
Quarter: 2021Q4

REPORT INFORMATION
  Report Type: Report from Study
  Country: ES (occurrence: ES)
  Receive Date: 20211105
  Receipt Date: 20211105
  Transmission Date: 20220303
  Serious: Yes (Hospitalization, Other)
  Sender: FDA-Public Use
  Company Number: ES-BAUSCH-BL-2021-036452

PATIENT
  Age: 65 Year
  Sex: Male
  Weight: 103 kg

DRUGS (1)
  1. BRODALUMAB [Suspect]
     Active Substance: BRODALUMAB
     Indication: Psoriasis
     Route: 065
     Dates: start: 20200721

REACTIONS (3)
  - Sepsis [Recovering/Resolving]
  - Cellulitis [Recovering/Resolving]
  - Abscess limb [Recovering/Resolving]

NARRATIVE: CASE EVENT DATE: 20210915
